FAERS Safety Report 17866879 (Version 2)
Quarter: 2020Q2

REPORT INFORMATION
  Report Type: Spontaneous
  Country: AR (occurrence: AR)
  Receive Date: 20200605
  Receipt Date: 20200605
  Transmission Date: 20200714
  Serious: Yes (Other)
  Sender: FDA-Public Use
  Company Number: AR-ABBVIE-20K-007-3430217-00

PATIENT
  Age: 13 Year
  Sex: Male

DRUGS (4)
  1. FLUTICASONE. [Interacting]
     Active Substance: FLUTICASONE
     Indication: IDIOPATHIC INTERSTITIAL PNEUMONIA
     Route: 055
  2. ABACAVIR. [Concomitant]
     Active Substance: ABACAVIR
     Indication: ANTIRETROVIRAL THERAPY
  3. KALETRA [Suspect]
     Active Substance: LOPINAVIR\RITONAVIR
     Indication: ANTIRETROVIRAL THERAPY
     Route: 048
  4. DIDANOSINE. [Concomitant]
     Active Substance: DIDANOSINE
     Indication: ANTIRETROVIRAL THERAPY

REACTIONS (7)
  - Hypothalamic pituitary adrenal axis suppression [Recovered/Resolved]
  - Acanthosis nigricans [Unknown]
  - Cortisol decreased [Unknown]
  - Drug interaction [Recovered/Resolved]
  - Disseminated tuberculosis [Recovered/Resolved]
  - Cushing^s syndrome [Recovered/Resolved]
  - Idiopathic interstitial pneumonia [Unknown]
